FAERS Safety Report 4512735-0 (Version None)
Quarter: 2004Q4

REPORT INFORMATION
  Report Type: 
  Country: None (occurrence: None)
  Receive Date: 20040928
  Receipt Date: 20040706
  Transmission Date: 20050328
  Serious: No
  Sender: FDA-Public Use
  Company Number: 04P-163-0265737-00

PATIENT
  Age: 50 Year
  Sex: Female
  Weight: 57.1532 kg

DRUGS (7)
  1. HUMIRA [Suspect]
     Indication: RHEUMATOID ARTHRITIS
     Dosage: 40 MG, 1 IN 2 WK, SUBCUTANEOUS
     Route: 058
     Dates: start: 20040517, end: 20040702
  2. CABIDOPA [Concomitant]
  3. SPIRONOLACTONE [Concomitant]
  4. LISINOPRIL [Concomitant]
  5. METHOTREXATE [Concomitant]
  6. FOLIC ACID [Concomitant]
  7. PREDNISONE [Concomitant]

REACTIONS (4)
  - BLISTER [None]
  - HERPES ZOSTER [None]
  - INJECTION SITE BURNING [None]
  - INJECTION SITE ERYTHEMA [None]
